FAERS Safety Report 8027403-0 (Version None)
Quarter: 2012Q1

REPORT INFORMATION
  Report Type: 
  Country: None (occurrence: None)
  Receive Date: 20120106
  Receipt Date: 20111227
  Transmission Date: 20120608
  Serious: Yes (Hospitalization)
  Sender: FDA-Public Use
  Company Number: JP-EISAI INC-E7389-01882-CLI-JP

PATIENT
  Sex: Female
  Weight: 65 kg

DRUGS (6)
  1. HALAVEN [Suspect]
     Indication: BREAST CANCER RECURRENT
     Route: 041
     Dates: start: 20111025
  2. LASIX [Concomitant]
     Route: 048
  3. ALOXI [Concomitant]
     Indication: PROPHYLAXIS
     Route: 041
  4. HALAVEN [Suspect]
     Indication: METASTASES TO LIVER
  5. HALAVEN [Suspect]
     Indication: METASTASES TO LYMPH NODES
  6. LANSOPRAZOLE [Concomitant]
     Route: 048

REACTIONS (1)
  - PNEUMONIA [None]
